FAERS Safety Report 4509543-3 (Version None)
Quarter: 2004Q4

REPORT INFORMATION
  Report Type: 
  Country: None (occurrence: None)
  Receive Date: 20041119
  Receipt Date: 20041108
  Transmission Date: 20050328
  Serious: Yes (Hospitalization, Other)
  Sender: FDA-Public Use
  Company Number: HQWYE681110MAR04

PATIENT
  Age: 52 Year
  Sex: Female
  Weight: 65.47 kg

DRUGS (5)
  1. RAPAMUNE [Suspect]
     Indication: PROPHYLAXIS AGAINST TRANSPLANT REJECTION
     Dosage: 3 MG 1X PER 1 DAY, ORAL
     Route: 048
     Dates: start: 20020526
  2. THYROID TAB [Concomitant]
  3. IRON (IRON) [Concomitant]
  4. LASIX [Concomitant]
  5. PROCRIT [Concomitant]

REACTIONS (2)
  - PULMONARY MASS [None]
  - TUBERCULOSIS [None]
